FAERS Safety Report 17422206 (Version 4)
Quarter: 2020Q2

REPORT INFORMATION
  Report Type: Report from Study
  Country: ES (occurrence: ES)
  Receive Date: 20200214
  Receipt Date: 20200402
  Transmission Date: 20200713
  Serious: Yes (Death)
  Sender: FDA-Public Use
  Company Number: ES-REGENERON PHARMACEUTICALS, INC.-2020-19596

PATIENT

DRUGS (1)
  1. CEMIPLIMAB [Suspect]
     Active Substance: CEMIPLIMAB
     Indication: SQUAMOUS CELL CARCINOMA
     Dosage: 350 MG, Q3W
     Route: 042
     Dates: start: 20191220, end: 20191220

REACTIONS (2)
  - Renal failure [Fatal]
  - Kidney transplant rejection [Unknown]

NARRATIVE: CASE EVENT DATE: 20200103
